FAERS Safety Report 23697527 (Version 1)
Quarter: 2024Q2

REPORT INFORMATION
  Report Type: Spontaneous
  Country: US (occurrence: US)
  Receive Date: 20240402
  Receipt Date: 20240402
  Transmission Date: 20240716
  Serious: No
  Sender: FDA-Public Use
  Company Number: US-SANDOZ-SDZ2024US035117

PATIENT
  Age: 55 Year
  Sex: Female

DRUGS (1)
  1. HYRIMOZ [Suspect]
     Active Substance: ADALIMUMAB-ADAZ
     Indication: Product used for unknown indication
     Dosage: ONCE EVERY 2 WEEKS
     Route: 003
     Dates: start: 20240221

REACTIONS (1)
  - Alopecia [Not Recovered/Not Resolved]
